FAERS Safety Report 7808394-1 (Version None)
Quarter: 2011Q4

REPORT INFORMATION
  Report Type: 
  Country: None (occurrence: None)
  Receive Date: 20111007
  Receipt Date: 20110929
  Transmission Date: 20120403
  Serious: Yes (Other)
  Sender: FDA-Public Use
  Company Number: 2010EU005020

PATIENT
  Age: 58 Year
  Sex: Male
  Weight: 62.8 kg

DRUGS (6)
  1. PREDNISOLONE [Concomitant]
  2. PROGRAF [Suspect]
     Indication: RENAL TRANSPLANT
     Dosage: ORAL
     Route: 048
     Dates: start: 20100603
  3. ASPIRIN [Concomitant]
  4. PRAVASTATIN [Concomitant]
  5. TADALAFIL [Concomitant]
  6. ADALT (NIFEDIPINE) [Concomitant]

REACTIONS (9)
  - VENTRICULAR TACHYCARDIA [None]
  - DERMATOPHYTOSIS [None]
  - BUNDLE BRANCH BLOCK LEFT [None]
  - RASH [None]
  - PRURITUS [None]
  - FATIGUE [None]
  - CUSHINGOID [None]
  - DYSPNOEA [None]
  - MUSCLE SPASMS [None]
